FAERS Safety Report 6867900-4 (Version None)
Quarter: 2010Q3

REPORT INFORMATION
  Report Type: 
  Country: None (occurrence: None)
  Receive Date: 20100722
  Receipt Date: 20100722
  Transmission Date: 20110219
  Serious: No
  Sender: FDA-Public Use
  Company Number: None

PATIENT
  Sex: Female
  Weight: 68.2 kg

DRUGS (2)
  1. AVELOX [Suspect]
     Indication: SINUSITIS
     Dosage: 1 TABLET 1 X DAY MOUTH
     Route: 048
     Dates: start: 20100701
  2. AVELOX [Suspect]
     Indication: SINUSITIS
     Dosage: 1 TABLET 1 X DAY MOUTH
     Route: 048
     Dates: start: 20100702

REACTIONS (6)
  - CHEST DISCOMFORT [None]
  - DYSPNOEA [None]
  - HEART RATE IRREGULAR [None]
  - PALPITATIONS [None]
  - RESTLESSNESS [None]
  - TENDON PAIN [None]
